FAERS Safety Report 11395167 (Version 1)
Quarter: 2015Q3

REPORT INFORMATION
  Report Type: Spontaneous
  Country: US (occurrence: US)
  Receive Date: 20150819
  Receipt Date: 20150819
  Transmission Date: 20151125
  Serious: No
  Sender: FDA-Public Use
  Company Number: US-PFIZER INC-2015266139

PATIENT
  Age: 85 Year
  Sex: Female
  Weight: 82 kg

DRUGS (2)
  1. LYRICA [Suspect]
     Active Substance: PREGABALIN
     Indication: NEUROPATHY PERIPHERAL
  2. LYRICA [Suspect]
     Active Substance: PREGABALIN
     Indication: ARTHRITIS
     Dosage: 50 MG, 1X/DAY (ONCE A DAY AT NIGHT)
     Route: 048
     Dates: start: 20150806

REACTIONS (9)
  - Confusional state [Unknown]
  - Drug ineffective [Unknown]
  - Thinking abnormal [Unknown]
  - Palpitations [Unknown]
  - Panic attack [Unknown]
  - Head discomfort [Unknown]
  - Feeling abnormal [Unknown]
  - Anxiety [Unknown]
  - Headache [Unknown]

NARRATIVE: CASE EVENT DATE: 20150807
